FAERS Safety Report 20553702 (Version 1)
Quarter: 2022Q1

REPORT INFORMATION
  Report Type: Spontaneous
  Country: US (occurrence: US)
  Receive Date: 20220304
  Receipt Date: 20220304
  Transmission Date: 20220423
  Serious: No
  Sender: FDA-Public Use
  Company Number: US-GILEAD-2022-0571920

PATIENT
  Sex: Male

DRUGS (8)
  1. EPCLUSA [Suspect]
     Active Substance: SOFOSBUVIR\VELPATASVIR
     Indication: Chronic hepatitis C
     Dosage: 1 DOSAGE FORM, QD
     Route: 048
  2. PROCARDIA [Concomitant]
     Active Substance: NIFEDIPINE
  3. ENALAPRIL MALEATE [Concomitant]
     Active Substance: ENALAPRIL MALEATE
  4. XANAX [Concomitant]
     Active Substance: ALPRAZOLAM
  5. ZINC [Concomitant]
     Active Substance: ZINC
  6. COBAMAMIDE [Concomitant]
     Active Substance: COBAMAMIDE
  7. POTASSIUM [Concomitant]
     Active Substance: POTASSIUM
  8. ASCORBIC ACID\BIOFLAVONOIDS [Concomitant]
     Active Substance: ASCORBIC ACID\BIOFLAVONOIDS

REACTIONS (1)
  - Surgery [Unknown]
